FAERS Safety Report 23038129 (Version 2)
Quarter: 2023Q4

REPORT INFORMATION
  Report Type: Spontaneous
  Country: AR (occurrence: AR)
  Receive Date: 20231006
  Receipt Date: 20231019
  Transmission Date: 20240109
  Serious: Yes (Death, Hospitalization, Other)
  Sender: FDA-Public Use
  Company Number: AR-002147023-NVSC2023AR214301

PATIENT
  Age: 1 Year
  Sex: Male

DRUGS (3)
  1. OMNITROPE [Suspect]
     Active Substance: SOMATROPIN
     Indication: Hypopituitarism
     Dosage: 0.25 MG/KG, QW
     Route: 065
  2. OMNITROPE [Suspect]
     Active Substance: SOMATROPIN
     Indication: Growth hormone deficiency
     Dosage: 5 MG, QD
     Route: 065
     Dates: start: 20230703
  3. LEVOTHYROXINE [Concomitant]
     Active Substance: LEVOTHYROXINE
     Indication: Product used for unknown indication
     Dosage: 50 UG, QD
     Route: 065
     Dates: start: 20230504

REACTIONS (12)
  - Cardiac arrest [Fatal]
  - Pyrexia [Fatal]
  - Rash macular [Fatal]
  - Skin discolouration [Fatal]
  - Vomiting [Fatal]
  - Dyspnoea [Fatal]
  - Hypoglycaemia [Fatal]
  - Thrombosis [Fatal]
  - Cardio-respiratory arrest [Fatal]
  - Nasopharyngitis [Fatal]
  - Bronchiolitis [Fatal]
  - Agitation [Fatal]

NARRATIVE: CASE EVENT DATE: 20231002
